FAERS Safety Report 9230986 (Version 2)
Quarter: 2013Q2

REPORT INFORMATION
  Report Type: Report from Study
  Country: US (occurrence: US)
  Receive Date: 20130415
  Receipt Date: 20130426
  Transmission Date: 20140414
  Serious: Yes (Life-Threatening, Hospitalization)
  Sender: FDA-Public Use
  Company Number: US-JNJFOC-20130404643

PATIENT
  Age: 73 Year
  Sex: Female

DRUGS (13)
  1. NUCYNTA ER [Suspect]
     Indication: PRODUCT USED FOR UNKNOWN INDICATION
     Route: 065
  2. AMITRIPTYLINE [Suspect]
     Indication: PRODUCT USED FOR UNKNOWN INDICATION
     Route: 065
  3. TRAMADOL [Concomitant]
     Route: 065
  4. FUROSEMIDE [Concomitant]
     Route: 065
  5. GABAPENTIN [Concomitant]
     Route: 065
  6. LEVOXYL [Concomitant]
     Route: 065
  7. LOVASTATIN [Concomitant]
     Route: 065
  8. OMEPRAZOLE [Concomitant]
     Route: 065
  9. AMLODIPINE [Concomitant]
     Route: 065
  10. VICODIN [Concomitant]
     Route: 065
  11. TRETINOIN [Concomitant]
     Route: 065
  12. TIAGABINE HYDROCHLORIDE [Concomitant]
     Route: 065
  13. PROCTOSONE [Concomitant]
     Route: 065

REACTIONS (8)
  - Hypopnoea [Recovering/Resolving]
  - Troponin increased [Recovering/Resolving]
  - Convulsion [Recovering/Resolving]
  - Toxicity to various agents [Recovering/Resolving]
  - Unresponsive to stimuli [Recovering/Resolving]
  - Electrocardiogram QT prolonged [Recovering/Resolving]
  - Electrocardiogram QRS complex prolonged [Recovering/Resolving]
  - Atrioventricular block first degree [Recovering/Resolving]
